FAERS Safety Report 21511633 (Version 1)
Quarter: 2022Q4

REPORT INFORMATION
  Report Type: Spontaneous
  Country: US (occurrence: US)
  Receive Date: 20221027
  Receipt Date: 20221027
  Transmission Date: 20230113
  Serious: No
  Sender: FDA-Public Use
  Company Number: US-BIOGEN-2022BI01164043

PATIENT
  Sex: Female

DRUGS (1)
  1. TYSABRI [Suspect]
     Active Substance: NATALIZUMAB
     Indication: Multiple sclerosis
     Route: 050
     Dates: start: 20160420, end: 20201023

REACTIONS (3)
  - Gestational hypertension [Recovered/Resolved]
  - Gestational diabetes [Not Recovered/Not Resolved]
  - Maternal exposure during pregnancy [Unknown]
